FAERS Safety Report 6265052-5 (Version None)
Quarter: 2009Q3

REPORT INFORMATION
  Report Type: 
  Country: None (occurrence: None)
  Receive Date: 20090713
  Receipt Date: 20090701
  Transmission Date: 20100115
  Serious: Yes (Hospitalization, Other)
  Sender: FDA-Public Use
  Company Number: US-PFIZER INC-2009235561

PATIENT
  Sex: Female
  Weight: 107.48 kg

DRUGS (15)
  1. LYRICA [Suspect]
     Indication: NEUROPATHY PERIPHERAL
     Dosage: 150 MG, 3X/DAY
     Dates: end: 20090629
  2. LIPITOR [Suspect]
     Indication: BLOOD CHOLESTEROL INCREASED
     Dosage: 20 MG, 1X/DAY
  3. ZYRTEC [Suspect]
     Indication: PRURITUS
     Dosage: 10 MG, 1X/DAY
  4. LOMOTIL [Suspect]
     Indication: DIARRHOEA
     Dosage: UNK
     Dates: start: 20090501
  5. DILAUDID [Suspect]
     Indication: PAIN
     Dosage: UNK
  6. PLAVIX [Suspect]
     Indication: CEREBROVASCULAR ACCIDENT
     Dosage: 75 MG, 1X/DAY
  7. CAPTOPRIL [Concomitant]
     Dosage: UNK
  8. CALCIUM WITH VITAMIN D [Concomitant]
     Dosage: UNK
  9. LANTUS [Concomitant]
     Dosage: UNK
  10. HUMALOG [Concomitant]
     Dosage: UNK
  11. LOPRESSOR [Concomitant]
     Indication: HYPERTENSION
     Dosage: UNK
  12. NITROGLYCERIN [Concomitant]
     Dosage: UNK
  13. ZANTAC [Concomitant]
     Indication: BARRETT'S OESOPHAGUS
     Dosage: UNK
  14. SITAGLIPTIN [Concomitant]
     Dosage: UNK
  15. PRILOSEC [Concomitant]
     Indication: BARRETT'S OESOPHAGUS
     Dosage: UNK

REACTIONS (18)
  - BLISTER [None]
  - BLOOD GLUCOSE INCREASED [None]
  - BLOOD PRESSURE INCREASED [None]
  - CELLULITIS [None]
  - CEREBROVASCULAR ACCIDENT [None]
  - DIARRHOEA [None]
  - DRUG INEFFECTIVE [None]
  - FACIAL PALSY [None]
  - FEELING ABNORMAL [None]
  - HEADACHE [None]
  - HYPOTHYROIDISM [None]
  - NEUROPATHY PERIPHERAL [None]
  - RASH PRURITIC [None]
  - SKIN DISCOLOURATION [None]
  - SKIN DISORDER [None]
  - SURGERY [None]
  - TRANSIENT ISCHAEMIC ATTACK [None]
  - WEIGHT INCREASED [None]
